FAERS Safety Report 7461845-7 (Version None)
Quarter: 2011Q2

REPORT INFORMATION
  Report Type: 
  Country: None (occurrence: None)
  Receive Date: 20110506
  Receipt Date: 20110503
  Transmission Date: 20111010
  Serious: No
  Sender: FDA-Public Use
  Company Number: US-PFIZER INC-2011095328

PATIENT
  Sex: Female
  Weight: 25.397 kg

DRUGS (2)
  1. AZITHROMYCIN [Suspect]
     Indication: PNEUMONIA
     Dosage: 7 ML, UNK
     Route: 048
     Dates: start: 20110430, end: 20110430
  2. AZITHROMYCIN [Suspect]
     Dosage: 3.5 ML, UNK
     Route: 048
     Dates: start: 20110501

REACTIONS (3)
  - RASH [None]
  - DIARRHOEA [None]
  - PRURITUS [None]
